FAERS Safety Report 6715292-3 (Version None)
Quarter: 2010Q2

REPORT INFORMATION
  Report Type: 
  Country: None (occurrence: None)
  Receive Date: 20100507
  Receipt Date: 20100427
  Transmission Date: 20101027
  Serious: Yes (Hospitalization, Other)
  Sender: FDA-Public Use
  Company Number: JP-BAYER-200915003BYL

PATIENT
  Age: 61 Year
  Sex: Male
  Weight: 49 kg

DRUGS (4)
  1. NEXAVAR [Suspect]
     Indication: HEPATIC NEOPLASM MALIGNANT
     Dosage: TOTAL DAILY DOSE: 800 MG  UNIT DOSE: 200 MG
     Route: 048
     Dates: start: 20091118, end: 20091125
  2. PARIET [Concomitant]
     Indication: GASTRIC ULCER
     Dosage: UNIT DOSE: 20 MG
     Route: 048
     Dates: start: 20091118, end: 20091127
  3. ENSURE LIQUID [Concomitant]
     Indication: NUTRITIONAL SUPPORT
     Dosage: UNIT DOSE: 250 ML
     Route: 048
     Dates: start: 20091118, end: 20091120
  4. KERATINAMIN [Concomitant]
     Indication: ECZEMA
     Route: 061
     Dates: start: 20091118, end: 20091125

REACTIONS (2)
  - C-REACTIVE PROTEIN INCREASED [None]
  - PYREXIA [None]
